FAERS Safety Report 7469351-0 (Version None)
Quarter: 2011Q2

REPORT INFORMATION
  Report Type: 
  Country: None (occurrence: None)
  Receive Date: 20110510
  Receipt Date: 20110426
  Transmission Date: 20111010
  Serious: Yes (Hospitalization)
  Sender: FDA-Public Use
  Company Number: US-ELI_LILLY_AND_COMPANY-US201102004332

PATIENT
  Sex: Female

DRUGS (9)
  1. FORTEO [Suspect]
     Indication: OSTEOPOROSIS
     Dosage: 20 UG, DAILY (1/D)
     Route: 058
     Dates: start: 20091230
  2. METRONIDAZOLE [Concomitant]
  3. REMICADE [Concomitant]
     Indication: CROHN'S DISEASE
  4. ASACOL [Concomitant]
  5. XANAX [Concomitant]
  6. ACTONEL [Concomitant]
  7. FLUOXETINE [Concomitant]
  8. TRAMADOL HCL [Concomitant]
  9. VITAMIN D [Concomitant]

REACTIONS (9)
  - FALL [None]
  - SWELLING [None]
  - LIMB DISCOMFORT [None]
  - JOINT SPRAIN [None]
  - UPPER LIMB FRACTURE [None]
  - HOSPITALISATION [None]
  - HYPOKINESIA [None]
  - PAIN IN EXTREMITY [None]
  - CYSTITIS [None]
